FAERS Safety Report 8025943-1 (Version None)
Quarter: 2012Q1

REPORT INFORMATION
  Report Type: 
  Country: None (occurrence: None)
  Receive Date: 20120105
  Receipt Date: 20110421
  Transmission Date: 20120608
  Serious: No
  Sender: FDA-Public Use
  Company Number: US-ABBOTT-11P-163-0721169-00

PATIENT
  Age: 65 Year
  Sex: Male

DRUGS (6)
  1. SYNTHROID [Suspect]
     Indication: HYPOTHYROIDISM
     Route: 048
     Dates: start: 20090101
  2. INSULIN GLARGINE [Suspect]
     Route: 058
     Dates: start: 20110201
  3. INSULIN GLARGINE [Suspect]
     Route: 058
     Dates: start: 20110101
  4. GLIPIZIDE [Concomitant]
     Indication: PRODUCT USED FOR UNKNOWN INDICATION
  5. INSULIN GLARGINE [Suspect]
     Indication: DIABETES MELLITUS
     Dates: start: 20090101
  6. UNKNOWN DRUG [Suspect]
     Indication: PRODUCT USED FOR UNKNOWN INDICATION

REACTIONS (2)
  - BLOOD GLUCOSE INCREASED [None]
  - HYPOTHYROIDISM [None]
